FAERS Safety Report 4477900-X (Version None)
Quarter: 2004Q3

REPORT INFORMATION
  Report Type: 
  Country: None (occurrence: None)
  Receive Date: 20040923
  Receipt Date: 20040616
  Transmission Date: 20050211
  Serious: No
  Sender: FDA-Public Use
  Company Number: USA040670407

PATIENT
  Sex: Female

DRUGS (1)
  1. FORTEO [Suspect]
     Indication: OSTEOPOROSIS
     Dates: start: 20040501

REACTIONS (4)
  - ARTHRALGIA [None]
  - ASTHENIA [None]
  - FATIGUE [None]
  - PAIN IN EXTREMITY [None]
